FAERS Safety Report 21697105 (Version 1)
Quarter: 2022Q4

REPORT INFORMATION
  Report Type: Report from Study
  Country: NL (occurrence: NL)
  Receive Date: 20221208
  Receipt Date: 20221208
  Transmission Date: 20230112
  Serious: Yes (Hospitalization, Other)
  Sender: FDA-Public Use
  Company Number: NL-BRISTOL-MYERS SQUIBB COMPANY-2022-149640

PATIENT
  Age: 66 Year
  Sex: Male
  Weight: 84 kg

DRUGS (2)
  1. IPILIMUMAB [Suspect]
     Active Substance: IPILIMUMAB
     Indication: Bladder cancer
     Route: 042
     Dates: start: 20221107, end: 20221129
  2. NIVOLUMAB [Suspect]
     Active Substance: NIVOLUMAB
     Indication: Bladder cancer
     Route: 042
     Dates: start: 20221107, end: 20221129

REACTIONS (1)
  - Haemolysis [Recovering/Resolving]

NARRATIVE: CASE EVENT DATE: 20221206
